FAERS Safety Report 18117425 (Version 1)
Quarter: 2020Q3

REPORT INFORMATION
  Report Type: Spontaneous
  Country: US (occurrence: US)
  Receive Date: 20200805
  Receipt Date: 20200805
  Transmission Date: 20201103
  Serious: No
  Sender: FDA-Public Use
  Company Number: None

PATIENT
  Age: 39 Year
  Sex: Female
  Weight: 110.25 kg

DRUGS (4)
  1. EFFEXOR [Concomitant]
     Active Substance: VENLAFAXINE HYDROCHLORIDE
  2. TOPAMAX [Concomitant]
     Active Substance: TOPIRAMATE
  3. LAMICTAL [Concomitant]
     Active Substance: LAMOTRIGINE
  4. CONTRAVE [Suspect]
     Active Substance: BUPROPION HYDROCHLORIDE\NALTREXONE HYDROCHLORIDE
     Indication: WEIGHT DECREASED
     Dosage: ?          QUANTITY:70 TABLET(S);OTHER FREQUENCY:4 WEEKS INCREASE;?
     Route: 048
     Dates: start: 20200720, end: 20200803

REACTIONS (8)
  - Mania [None]
  - Affective disorder [None]
  - Loss of personal independence in daily activities [None]
  - Abdominal discomfort [None]
  - Irritability [None]
  - Diarrhoea [None]
  - Hypersomnia [None]
  - Dry mouth [None]
